FAERS Safety Report 12657860 (Version 2)
Quarter: 2017Q2

REPORT INFORMATION
  Report Type: Spontaneous
  Country: US (occurrence: US)
  Receive Date: 20160817
  Receipt Date: 20170619
  Transmission Date: 20170830
  Serious: Yes (Hospitalization)
  Sender: FDA-Public Use
  Company Number: US-ASTRAZENECA-2016SE86387

PATIENT
  Age: 30906 Day
  Sex: Male

DRUGS (12)
  1. MIRALAX [Concomitant]
     Active Substance: POLYETHYLENE GLYCOL 3350
     Indication: BOWEL MOVEMENT IRREGULARITY
     Dosage: EVERY OTHER DAY
     Route: 048
     Dates: start: 2014
  2. ZETIA [Concomitant]
     Active Substance: EZETIMIBE
     Indication: BLOOD CHOLESTEROL ABNORMAL
     Route: 048
     Dates: start: 201310
  3. SYMBICORT [Suspect]
     Active Substance: BUDESONIDE\FORMOTEROL FUMARATE DIHYDRATE
     Indication: CHRONIC OBSTRUCTIVE PULMONARY DISEASE
     Dosage: 160/4.5 UG, 2 PUFFS TWICE A DAY
     Route: 055
     Dates: start: 2012
  4. BABY ASPIRIN [Concomitant]
     Active Substance: ASPIRIN
     Indication: ANTICOAGULANT THERAPY
     Route: 048
     Dates: start: 2010
  5. SYMBICORT [Suspect]
     Active Substance: BUDESONIDE\FORMOTEROL FUMARATE DIHYDRATE
     Indication: ASTHMA
     Dosage: 160/4.5 UG, 2 PUFFS TWICE A DAY
     Route: 055
     Dates: start: 2012
  6. ALBUTEROL. [Concomitant]
     Active Substance: ALBUTEROL
     Indication: ASTHMA
     Dosage: NEBULIZER 4 TIMES A DAY
     Route: 055
     Dates: start: 201308
  7. MIDODRINE [Concomitant]
     Active Substance: MIDODRINE
     Indication: BLOOD PRESSURE ABNORMAL
     Route: 048
     Dates: start: 201407
  8. ALBUTEROL. [Concomitant]
     Active Substance: ALBUTEROL
     Indication: CHRONIC OBSTRUCTIVE PULMONARY DISEASE
     Dosage: NEBULIZER 4 TIMES A DAY
     Route: 055
     Dates: start: 201308
  9. ALBUTEROL. [Concomitant]
     Active Substance: ALBUTEROL
     Indication: BRONCHIECTASIS
     Dosage: NEBULIZER 4 TIMES A DAY
     Route: 055
     Dates: start: 201308
  10. SYMBICORT [Suspect]
     Active Substance: BUDESONIDE\FORMOTEROL FUMARATE DIHYDRATE
     Indication: BRONCHIECTASIS
     Dosage: 160/4.5 UG, 2 PUFFS TWICE A DAY
     Route: 055
     Dates: start: 2012
  11. SENNA [Concomitant]
     Active Substance: SENNA LEAF\SENNOSIDES\SENNOSIDES A AND B
     Indication: FAECES HARD
     Dosage: TWO TIMES A DAY
     Route: 048
     Dates: start: 2014
  12. MELATONIN [Concomitant]
     Active Substance: MELATONIN
     Indication: SLEEP DISORDER
     Route: 048

REACTIONS (11)
  - Aortic stenosis [Unknown]
  - Pneumonia [Unknown]
  - Weight decreased [Unknown]
  - Gait disturbance [Unknown]
  - Body height decreased [Unknown]
  - Drug dose omission [Unknown]
  - Intentional product misuse [Unknown]
  - Bladder cancer [Unknown]
  - Renal cancer [Unknown]
  - Dementia [Unknown]
  - Device breakage [Unknown]

NARRATIVE: CASE EVENT DATE: 20130816
